FAERS Safety Report 24204641 (Version 1)
Quarter: 2024Q3

REPORT INFORMATION
  Report Type: Spontaneous
  Country: CA (occurrence: CA)
  Receive Date: 20240813
  Receipt Date: 20240813
  Transmission Date: 20241017
  Serious: Yes (Other)
  Sender: PFIZER
  Company Number: CA-PFIZER INC-202201375074

PATIENT
  Age: 63 Year
  Sex: Female
  Weight: 65 kg

DRUGS (5)
  1. RUXIENCE [Suspect]
     Active Substance: RITUXIMAB-PVVR
     Indication: Immunoglobulin G4 related disease
     Dosage: 1000 MG, DAY 1 (1G, 2 DOSES, 2 WEEKS APART)
     Route: 042
     Dates: start: 20230316
  2. RUXIENCE [Suspect]
     Active Substance: RITUXIMAB-PVVR
     Dosage: 1000 MG, (1G, 2 DOSES, 2 WEEKS APART)
     Route: 042
     Dates: start: 20230330
  3. RUXIENCE [Suspect]
     Active Substance: RITUXIMAB-PVVR
     Dosage: 1000 MG, (1 G), EVERY 6 MONTHS, (ONE IV DOSE)
     Route: 042
     Dates: start: 20230918
  4. RUXIENCE [Suspect]
     Active Substance: RITUXIMAB-PVVR
     Dosage: 1000 MG, (1 G), EVERY 6 MONTHS
     Route: 042
     Dates: start: 20240318
  5. PREDNISONE [Concomitant]
     Active Substance: PREDNISONE
     Dosage: 1 DF

REACTIONS (3)
  - Productive cough [Not Recovered/Not Resolved]
  - Drug effective for unapproved indication [Unknown]
  - Off label use [Unknown]

NARRATIVE: CASE EVENT DATE: 20230316
